FAERS Safety Report 11849916 (Version 2)
Quarter: 2015Q4

REPORT INFORMATION
  Report Type: Report from Study
  Country: US (occurrence: US)
  Receive Date: 20151218
  Receipt Date: 20151231
  Transmission Date: 20160305
  Serious: Yes (Other)
  Sender: FDA-Public Use
  Company Number: US-PFIZER INC-2015448352

PATIENT
  Age: 44 Year
  Sex: Male

DRUGS (2)
  1. ENBREL [Suspect]
     Active Substance: ETANERCEPT
     Indication: ANKYLOSING SPONDYLITIS
     Dosage: 50 MG, QWK
     Route: 065
     Dates: start: 20151021
  2. METHYLPREDNISOLONE. [Suspect]
     Active Substance: METHYLPREDNISOLONE
     Dosage: 20MG IN THE MORNING AND 4MG IN THE EVENING
     Route: 048

REACTIONS (6)
  - Fatigue [Unknown]
  - Costochondritis [Unknown]
  - Laryngeal oedema [Unknown]
  - Injection site mass [Unknown]
  - Oral herpes [Unknown]
  - Weight increased [Unknown]

NARRATIVE: CASE EVENT DATE: 2015
